FAERS Safety Report 19517735 (Version 1)
Quarter: 2021Q3

REPORT INFORMATION
  Report Type: Spontaneous
  Country: US (occurrence: US)
  Receive Date: 20210712
  Receipt Date: 20210712
  Transmission Date: 20211014
  Serious: Yes (Other)
  Sender: FDA-Public Use
  Company Number: US-GILEAD-2021-0539806

PATIENT

DRUGS (1)
  1. ATRIPLA [Suspect]
     Active Substance: EFAVIRENZ\EMTRICITABINE\TENOFOVIR DISOPROXIL FUMARATE
     Indication: PRODUCT USED FOR UNKNOWN INDICATION
     Dosage: UNK
     Route: 048
     Dates: start: 20040101, end: 20151231

REACTIONS (7)
  - Bone density decreased [Unknown]
  - Osteonecrosis [Unknown]
  - Renal failure [Unknown]
  - Multiple fractures [Unknown]
  - Bone loss [Unknown]
  - Chronic kidney disease [Unknown]
  - Tooth loss [Unknown]
